FAERS Safety Report 17552659 (Version 1)
Quarter: 2020Q1

REPORT INFORMATION
  Report Type: Spontaneous
  Country: US (occurrence: US)
  Receive Date: 20200310
  Receipt Date: 20200310
  Transmission Date: 20200409
  Serious: Yes (Death)
  Sender: FDA-Public Use
  Company Number: None

PATIENT
  Sex: Male

DRUGS (23)
  1. ASPIRIN. [Concomitant]
     Active Substance: ASPIRIN
  2. RUROSEMIDE [Concomitant]
  3. GABAPENTIN. [Concomitant]
     Active Substance: GABAPENTIN
  4. HYDROMORPHON [Concomitant]
     Active Substance: HYDROMORPHONE
  5. VIT B COMPLX/VIT C [Concomitant]
  6. MENS MULTI (VIT/MIN) [Concomitant]
  7. METHOCARBAM [Concomitant]
     Active Substance: METHOCARBAMOL
  8. PREDNISONE. [Concomitant]
     Active Substance: PREDNISONE
  9. GAVILYTE G [Concomitant]
     Active Substance: POLYETHYLENE GLYCOL 3350\POTASSIUM CHLORIDE\SODIUM BICARBONATE\SODIUM CHLORIDE\SODIUM SULFATE ANHYDROUS
  10. PANTOPRAZOLE [Concomitant]
     Active Substance: PANTOPRAZOLE
  11. SUCRALFATE. [Concomitant]
     Active Substance: SUCRALFATE
  12. AZITHROMYCIN ANHYDROUS. [Concomitant]
     Active Substance: AZITHROMYCIN ANHYDROUS
  13. CEPHALEXIN. [Concomitant]
     Active Substance: CEPHALEXIN
  14. DEXAMETHASONE. [Concomitant]
     Active Substance: DEXAMETHASONE
  15. IPRATROPIUM/SOL ALBUTER [Concomitant]
  16. OXYCODONE [Concomitant]
     Active Substance: OXYCODONE
  17. ZERIT [Concomitant]
     Active Substance: STAVUDINE
  18. ZYRTEC ALLGY [Concomitant]
  19. MORPHINE SUL [Concomitant]
     Active Substance: MORPHINE SULFATE
  20. INLYTA [Suspect]
     Active Substance: AXITINIB
     Indication: RENAL CANCER
     Route: 048
     Dates: start: 20200130
  21. DICLOFENAC [Concomitant]
     Active Substance: DICLOFENAC
  22. DIPHEN/ATROP [Concomitant]
     Active Substance: ATROPINE SULFATE\DIPHENOXYLATE
  23. VITAMIN C [Concomitant]
     Active Substance: ASCORBIC ACID

REACTIONS (1)
  - Drug ineffective [None]
